FAERS Safety Report 20751099 (Version 1)
Quarter: 2022Q2

REPORT INFORMATION
  Report Type: Spontaneous
  Country: US (occurrence: None)
  Receive Date: 20220426
  Receipt Date: 20220426
  Transmission Date: 20220721
  Serious: Yes (Disabling)
  Sender: FDA-Public Use
  Company Number: None

PATIENT
  Age: 33 Year
  Sex: Female
  Weight: 72 kg

DRUGS (1)
  1. EMGALITY [Suspect]
     Active Substance: GALCANEZUMAB-GNLM
     Indication: Migraine prophylaxis
     Dosage: OTHER QUANTITY : 1 INJECTION(S);?OTHER FREQUENCY : MONTHLY;?
     Route: 058
     Dates: end: 20211220

REACTIONS (7)
  - Depersonalisation/derealisation disorder [None]
  - Emotional distress [None]
  - Amnesia [None]
  - Intentional dose omission [None]
  - Amnesia [None]
  - Confusional state [None]
  - Mental impairment [None]

NARRATIVE: CASE EVENT DATE: 20201215
